FAERS Safety Report 9370360 (Version 1)
Quarter: 2013Q2

REPORT INFORMATION
  Report Type: Spontaneous
  Country: US (occurrence: US)
  Receive Date: 20130626
  Receipt Date: 20130626
  Transmission Date: 20140414
  Serious: Yes (Other)
  Sender: FDA-Public Use
  Company Number: US-ASTRAZENECA-2013SE48000

PATIENT
  Age: 71 Year
  Sex: Female
  Weight: 49 kg

DRUGS (6)
  1. ARIMIDEX [Suspect]
     Indication: BREAST CANCER
     Route: 048
  2. FASLODEX [Suspect]
     Indication: BREAST CANCER METASTATIC
     Route: 030
     Dates: start: 201305
  3. TAMOXIFEN [Suspect]
     Indication: BREAST CANCER
     Route: 048
  4. TAMOXIFEN [Suspect]
     Indication: BONE CANCER
     Route: 048
  5. VITAMINS [Concomitant]
  6. TRAMADOL [Concomitant]
     Indication: PAIN

REACTIONS (12)
  - Bone cancer metastatic [Unknown]
  - Muscular weakness [Unknown]
  - Arthralgia [Unknown]
  - Back pain [Unknown]
  - Movement disorder [Unknown]
  - Pain in extremity [Unknown]
  - Urine odour abnormal [Unknown]
  - Malaise [Unknown]
  - Mental impairment [Unknown]
  - Nephrolithiasis [Unknown]
  - Pain in extremity [Recovered/Resolved]
  - Hot flush [Unknown]
